FAERS Safety Report 4370430-5 (Version None)
Quarter: 2004Q2

REPORT INFORMATION
  Report Type: 
  Country: None (occurrence: None)
  Receive Date: 20040603
  Receipt Date: 20040210
  Transmission Date: 20050107
  Serious: No
  Sender: FDA-Public Use
  Company Number: US-BRISTOL-MYERS SQUIBB COMPANY-12501094

PATIENT
  Sex: Female

DRUGS (2)
  1. ABILIFY [Suspect]
     Route: 048
  2. GLIPIZIDE [Concomitant]
     Dosage: DOSE INCREASED TO 5 MG TABLET 5 X/DAY (DATE NOT SPECIFIED)

REACTIONS (5)
  - ASTHENIA [None]
  - BALANCE DISORDER [None]
  - BLOOD GLUCOSE INCREASED [None]
  - DIZZINESS [None]
  - PAIN IN EXTREMITY [None]
